FAERS Safety Report 8658292 (Version 2)
Quarter: 2012Q4

REPORT INFORMATION
  Report Type: 
  Country: TR (occurrence: TR)
  Receive Date: 20120710
  Receipt Date: 20120910
  Transmission Date: 20130627
  Serious: Yes (Hospitalization)
  Sender: FDA-Public Use
  Company Number: TR-BAYER-2012-067556

PATIENT
  Age: 39 Year
  Sex: Female

DRUGS (3)
  1. BETAFERON [Suspect]
     Dosage: 8 miu, UNK
     Route: 058
     Dates: start: 20120523, end: 20120622
  2. LIORESAL [Concomitant]
  3. TEGRETOL [Concomitant]

REACTIONS (3)
  - Affective disorder [Recovering/Resolving]
  - Skin oedema [Recovering/Resolving]
  - Pruritus [Recovering/Resolving]
